FAERS Safety Report 5922375-4 (Version None)
Quarter: 2008Q4

REPORT INFORMATION
  Report Type: 
  Country: None (occurrence: None)
  Receive Date: 20081017
  Receipt Date: 20081009
  Transmission Date: 20090506
  Serious: Yes (Hospitalization, Other)
  Sender: FDA-Public Use
  Company Number: US-MERCK-0810USA01940

PATIENT
  Age: 78 Year
  Sex: Male
  Weight: 98 kg

DRUGS (13)
  1. JANUVIA [Suspect]
     Indication: TYPE 2 DIABETES MELLITUS
     Route: 048
     Dates: start: 20080801
  2. ASPIRIN [Concomitant]
     Route: 065
  3. CELLCEPT [Concomitant]
     Route: 048
  4. PREDNISONE [Concomitant]
     Route: 065
  5. HYDRALAZINE [Concomitant]
     Route: 065
  6. PROGRAFT [Concomitant]
     Route: 048
  7. PROTONIX [Concomitant]
     Route: 065
  8. SINGULAIR [Concomitant]
     Route: 048
  9. TOPROL-XL [Concomitant]
     Route: 065
  10. PACERONE [Concomitant]
     Route: 065
  11. NORVASC [Concomitant]
     Route: 065
  12. PRAVASTATIN SODIUM [Concomitant]
     Route: 065
  13. AMBIEN [Concomitant]
     Route: 065

REACTIONS (2)
  - KIDNEY TRANSPLANT REJECTION [None]
  - POSTNASAL DRIP [None]
